FAERS Safety Report 8288369-1 (Version None)
Quarter: 2012Q2

REPORT INFORMATION
  Report Type: 
  Country: None (occurrence: None)
  Receive Date: 20120416
  Receipt Date: 20120404
  Transmission Date: 20120825
  Serious: Yes (Other)
  Sender: FDA-Public Use
  Company Number: US-ELI_LILLY_AND_COMPANY-US201111004045

PATIENT
  Sex: Female

DRUGS (3)
  1. FORTEO [Suspect]
     Dosage: 20 UG, QD
  2. FORTEO [Suspect]
     Indication: OSTEOPOROSIS
     Dosage: 20 UG, QD
     Dates: start: 20111101
  3. FORTEO [Suspect]
     Dosage: 20 UG, QD

REACTIONS (4)
  - BACK DISORDER [None]
  - ARTERIAL STENOSIS LIMB [None]
  - MUSCULAR WEAKNESS [None]
  - PAIN IN EXTREMITY [None]
